FAERS Safety Report 17033089 (Version 1)
Quarter: 2019Q4

REPORT INFORMATION
  Report Type: Spontaneous
  Country: CA (occurrence: CA)
  Receive Date: 20191114
  Receipt Date: 20191114
  Transmission Date: 20200122
  Serious: Yes (Other)
  Sender: FDA-Public Use
  Company Number: CA-TEVA-2019-CA-1136478

PATIENT
  Sex: Female

DRUGS (10)
  1. PREDNISONE. [Suspect]
     Active Substance: PREDNISONE
     Indication: JUVENILE IDIOPATHIC ARTHRITIS
     Route: 065
  2. ORENCIA [Suspect]
     Active Substance: ABATACEPT
     Indication: JUVENILE IDIOPATHIC ARTHRITIS
     Route: 065
  3. TOCILIZUMAB. [Suspect]
     Active Substance: TOCILIZUMAB
     Indication: JUVENILE IDIOPATHIC ARTHRITIS
     Route: 065
  4. METHOTREXATE. [Concomitant]
     Active Substance: METHOTREXATE
     Route: 048
  5. TOFACITINIB [Concomitant]
     Active Substance: TOFACITINIB
     Indication: JUVENILE IDIOPATHIC ARTHRITIS
     Dosage: 10 MILLIGRAM DAILY;
     Route: 048
  6. TOCILIZUMAB. [Suspect]
     Active Substance: TOCILIZUMAB
     Route: 065
  7. OMEPRAZOLE. [Concomitant]
     Active Substance: OMEPRAZOLE
     Dosage: 30 MILLIGRAM DAILY;
     Route: 048
  8. ADALIMUMAB [Suspect]
     Active Substance: ADALIMUMAB
     Indication: JUVENILE IDIOPATHIC ARTHRITIS
     Route: 065
  9. CYPROHEPTADINE. [Suspect]
     Active Substance: CYPROHEPTADINE
     Dosage: 6 MILLIGRAM DAILY;
     Route: 048
  10. INFLIXIMAB [Concomitant]
     Active Substance: INFLIXIMAB
     Route: 042

REACTIONS (6)
  - Bone density decreased [Unknown]
  - Immobile [Unknown]
  - Torus fracture [Unknown]
  - Growth retardation [Unknown]
  - Disease progression [Unknown]
  - Drug ineffective [Unknown]
